FAERS Safety Report 9162655 (Version 2)
Quarter: 2013Q2

REPORT INFORMATION
  Report Type: Report from Study
  Country: US (occurrence: US)
  Receive Date: 20130314
  Receipt Date: 20130506
  Transmission Date: 20140414
  Serious: No
  Sender: FDA-Public Use
  Company Number: US-VERTEX PHARMACEUTICALS INC.-2013-003435

PATIENT
  Age: 30 Year
  Sex: Male

DRUGS (6)
  1. VX-950 (TELAPREVIR) [Suspect]
     Indication: HEPATITIS C
     Dosage: 750 MG, TID
     Route: 048
     Dates: start: 20120420, end: 20120424
  2. PEGASYS [Suspect]
     Indication: HEPATITIS C
     Dosage: 180 ?G / 0.5 ML
     Dates: start: 20120420, end: 20120424
  3. RIBAVIRIN [Suspect]
     Indication: HEPATITIS C
     Dosage: 600 MG, UNK
     Dates: start: 20120420, end: 20120424
  4. LORTAB [Concomitant]
  5. PHENERGAN [Concomitant]
  6. EXFORGE [Concomitant]

REACTIONS (4)
  - Depressed mood [Unknown]
  - Memory impairment [Unknown]
  - Anger [Unknown]
  - Aggression [Unknown]
